FAERS Safety Report 16484902 (Version 1)
Quarter: 2019Q2

REPORT INFORMATION
  Report Type: Spontaneous
  Country: US (occurrence: US)
  Receive Date: 20190516
  Receipt Date: 20190516
  Transmission Date: 20190711
  Serious: No
  Sender: FDA-Public Use
  Company Number: None

PATIENT
  Age: 66 Year
  Sex: Female

DRUGS (1)
  1. IMATINIB 400 MG TAB (X30) [Suspect]
     Active Substance: IMATINIB MESYLATE
     Route: 048
     Dates: start: 20160930

REACTIONS (2)
  - Migraine [None]
  - Dysphagia [None]

NARRATIVE: CASE EVENT DATE: 20190516
